FAERS Safety Report 5028375-3 (Version None)
Quarter: 2006Q2

REPORT INFORMATION
  Report Type: 
  Country: None (occurrence: None)
  Receive Date: 20060503
  Receipt Date: 20060228
  Transmission Date: 20061013
  Serious: No
  Sender: FDA-Public Use
  Company Number: FACT0600122

PATIENT
  Age: 65 Year
  Sex: Male
  Weight: 88.4 kg

DRUGS (4)
  1. FACTIVE [Suspect]
     Indication: RESPIRATORY TRACT INFECTION BACTERIAL
     Dosage: 320 MG, QD, ORAL
     Route: 048
     Dates: start: 20060223, end: 20060227
  2. CORTICOSTEROIDS() INJECTION [Suspect]
     Dates: start: 20060223, end: 20060223
  3. OXYMETAZOLINE HCL [Suspect]
     Indication: EAR INFECTION
     Dates: start: 20060223
  4. HYZAAR [Concomitant]

REACTIONS (2)
  - FLUSHING [None]
  - RASH GENERALISED [None]
